FAERS Safety Report 8958597 (Version 2)
Quarter: 2013Q1

REPORT INFORMATION
  Report Type: Spontaneous
  Country: US (occurrence: None)
  Receive Date: 20121203
  Receipt Date: 20121213
  Transmission Date: 20140127
  Serious: Yes (Other)
  Sender: FDA-Public Use
  Company Number: JPI-P-026457

PATIENT
  Age: 37 Year
  Sex: Female
  Weight: 52.62 kg

DRUGS (5)
  1. XYREM (500 MILLIGRAM/MILLILITERS, SOLUTION) (SODIUM OXYBATE) [Suspect]
     Indication: INSOMNIA
     Route: 048
     Dates: start: 20090930
  2. XYREM (500 MILLIGRAM/MILLILITERS, SOLUTION) (SODIUM OXYBATE) [Suspect]
     Indication: NARCOLEPSY
     Route: 048
     Dates: start: 20090930
  3. NAPROXEN SODIUM [Concomitant]
  4. ACETYLSALICYLIC ACID [Concomitant]
  5. TRAZODONE [Concomitant]

REACTIONS (1)
  - Gastrointestinal surgery [None]
